FAERS Safety Report 19638695 (Version 1)
Quarter: 2021Q3

REPORT INFORMATION
  Report Type: Spontaneous
  Country: CA (occurrence: CA)
  Receive Date: 20210730
  Receipt Date: 20210730
  Transmission Date: 20211014
  Serious: Yes (Other)
  Sender: FDA-Public Use
  Company Number: CA-MYLANLABS-2021M1045010

PATIENT
  Sex: Male

DRUGS (1)
  1. MYLAN?TADALAFIL [Suspect]
     Active Substance: TADALAFIL
     Indication: ERECTILE DYSFUNCTION
     Dosage: UNK

REACTIONS (2)
  - Product substitution issue [Unknown]
  - Drug ineffective [Not Recovered/Not Resolved]
